FAERS Safety Report 18850347 (Version 2)
Quarter: 2021Q1

REPORT INFORMATION
  Report Type: Spontaneous
  Country: CA (occurrence: CA)
  Receive Date: 20210204
  Receipt Date: 20210318
  Transmission Date: 20210420
  Serious: Yes (Other)
  Sender: FDA-Public Use
  Company Number: CA-CELLTRION INC.-2019CA022852

PATIENT

DRUGS (16)
  1. INFLECTRA [Suspect]
     Active Substance: INFLIXIMAB-DYYB
     Indication: TUMOUR NECROSIS FACTOR RECEPTOR-ASSOCIATED PERIODIC SYNDROME
     Dosage: 500 MG, THEN EVERY 5 WEEKS
     Route: 042
     Dates: start: 20191001
  2. INFLECTRA [Suspect]
     Active Substance: INFLIXIMAB-DYYB
     Dosage: 500 MG, THEN EVERY 5 WEEKS
     Route: 042
     Dates: start: 20200814
  3. METRONIDAZOLE. [Concomitant]
     Active Substance: METRONIDAZOLE
     Dosage: 25 MG
     Dates: start: 202010
  4. INFLECTRA [Suspect]
     Active Substance: INFLIXIMAB-DYYB
     Dosage: 500 MG, THEN EVERY 5 WEEKS
     Route: 042
     Dates: start: 20200115
  5. INFLECTRA [Suspect]
     Active Substance: INFLIXIMAB-DYYB
     Dosage: 500 MG, THEN EVERY 5 WEEKS
     Route: 042
     Dates: start: 20200708
  6. METHOTREXATE. [Concomitant]
     Active Substance: METHOTREXATE
     Dosage: 25 MG, WEEKLY (ONCE WEEKLY)
     Route: 048
  7. FOLIC ACID. [Concomitant]
     Active Substance: FOLIC ACID
     Dosage: 5 MG, (TWICE WEEKLY)
     Route: 048
     Dates: start: 202010
  8. INFLECTRA [Suspect]
     Active Substance: INFLIXIMAB-DYYB
     Dosage: 500 MG, THEN EVERY 5 WEEKS
     Route: 042
     Dates: start: 20200325
  9. INFLECTRA [Suspect]
     Active Substance: INFLIXIMAB-DYYB
     Dosage: 500 MG, THEN EVERY 5 WEEKS
     Route: 042
     Dates: start: 20200916
  10. DIMENHYDRINATE. [Concomitant]
     Active Substance: DIMENHYDRINATE
     Dosage: 50 MG
     Route: 042
     Dates: start: 20200814, end: 20200814
  11. LOSEC [Concomitant]
     Active Substance: OMEPRAZOLE
     Dosage: 20 MG, HS
     Route: 065
  12. INFLECTRA [Suspect]
     Active Substance: INFLIXIMAB-DYYB
     Dosage: 500 MG, THEN EVERY 5 WEEKS
     Route: 042
     Dates: start: 20200422
  13. DIMENHYDRINATE. [Concomitant]
     Active Substance: DIMENHYDRINATE
     Indication: PREMEDICATION
     Dosage: 25 MG
     Route: 042
     Dates: start: 20200422, end: 20200422
  14. DIPHENHYDRAMINE. [Concomitant]
     Active Substance: DIPHENHYDRAMINE
     Indication: PREMEDICATION
     Dosage: 50 MG
     Dates: start: 20200814, end: 20200814
  15. PREDNISONE. [Concomitant]
     Active Substance: PREDNISONE
     Dosage: 10 MG, DAILY
     Route: 065
     Dates: start: 202009
  16. VITAMIN D [ERGOCALCIFEROL] [Concomitant]
     Active Substance: ERGOCALCIFEROL
     Dosage: 2000 IU
     Dates: start: 2020

REACTIONS (22)
  - Condition aggravated [Unknown]
  - Off label use [Unknown]
  - Product use in unapproved indication [Unknown]
  - Red blood cell count increased [Unknown]
  - Mean cell haemoglobin decreased [Unknown]
  - C-reactive protein increased [Unknown]
  - Therapeutic response shortened [Unknown]
  - Skin lesion inflammation [Unknown]
  - White blood cell count increased [Unknown]
  - Erythema multiforme [Unknown]
  - Haemoglobin decreased [Unknown]
  - Vitamin D decreased [Unknown]
  - Skin lesion [Unknown]
  - Blood pressure increased [Unknown]
  - Mean cell volume decreased [Unknown]
  - Red cell distribution width increased [Unknown]
  - Blood test abnormal [Unknown]
  - Acute febrile neutrophilic dermatosis [Unknown]
  - Product use issue [Unknown]
  - Inappropriate schedule of product administration [Unknown]
  - Burning sensation [Unknown]
  - Blood potassium increased [Unknown]

NARRATIVE: CASE EVENT DATE: 20191001
